FAERS Safety Report 8578069-2 (Version None)
Quarter: 2012Q3

REPORT INFORMATION
  Report Type: 
  Country: None (occurrence: None)
  Receive Date: 20120808
  Receipt Date: 20120805
  Transmission Date: 20120928
  Serious: Yes (Other)
  Sender: FDA-Public Use
  Company Number: PHEH2012US012580

PATIENT
  Sex: Female

DRUGS (7)
  1. ARICEPT [Concomitant]
     Dosage: UNK
  2. PRAVASTATIN [Concomitant]
     Dosage: UNK UKN, UNK
  3. EXELON [Suspect]
     Dosage: 2 PATCHES (4.6 MG), DAILY
     Route: 062
     Dates: start: 20120501
  4. EXELON [Suspect]
     Indication: DEMENTIA ALZHEIMER'S TYPE
     Dosage: 4.6 MG, DAILY
     Route: 062
     Dates: start: 20120501
  5. NAMENDA [Concomitant]
     Dosage: UNK
  6. CYMBALTA [Concomitant]
     Dosage: UNK UKN, UNK
  7. SEROQUEL [Concomitant]
     Dosage: UNK UKN, UNK

REACTIONS (5)
  - NO THERAPEUTIC RESPONSE [None]
  - INCORRECT DOSE ADMINISTERED [None]
  - HEAD INJURY [None]
  - FALL [None]
  - MEMORY IMPAIRMENT [None]
